FAERS Safety Report 4668327-6 (Version None)
Quarter: 2005Q2

REPORT INFORMATION
  Report Type: 
  Country: None (occurrence: None)
  Receive Date: 20050523
  Receipt Date: 20050324
  Transmission Date: 20051028
  Serious: Yes (Other)
  Sender: FDA-Public Use
  Company Number: PHEH2005US03606

PATIENT
  Age: 83 Year
  Sex: Female

DRUGS (7)
  1. POTASSIUM CHLORIDE [Concomitant]
  2. ZOMETA [Suspect]
     Indication: METASTASES TO BONE
     Dosage: 4 (UNK) EVERY 4 WEEKS
     Route: 042
     Dates: start: 20030803, end: 20050321
  3. THALIDOMIDE [Concomitant]
     Indication: MULTIPLE MYELOMA
     Dosage: 100 MG, UNK
     Route: 048
     Dates: start: 20030821
  4. DECADRON                                /CAN/ [Concomitant]
     Indication: MULTIPLE MYELOMA
     Dosage: 40 MG X 5 DAYS EVERY MONTH
     Route: 048
     Dates: start: 20030821
  5. ASPIRIN [Concomitant]
  6. HYDROCHLOROTHIAZIDE [Concomitant]
  7. DIFLUCAN [Concomitant]

REACTIONS (11)
  - ABSCESS ORAL [None]
  - ASEPTIC NECROSIS BONE [None]
  - CANDIDIASIS [None]
  - EXCESSIVE GRANULATION TISSUE [None]
  - IMPAIRED HEALING [None]
  - INFECTION [None]
  - OSTEOSCLEROSIS [None]
  - PLASMA CELLS PRESENT [None]
  - TOOTH DISORDER [None]
  - TOOTH EXTRACTION [None]
  - WOUND DEBRIDEMENT [None]
